FAERS Safety Report 9654366 (Version 1)
Quarter: 2013Q4

REPORT INFORMATION
  Report Type: Spontaneous
  Country: IT (occurrence: IT)
  Receive Date: 20131029
  Receipt Date: 20131029
  Transmission Date: 20140711
  Serious: Yes (Hospitalization, Disabling)
  Sender: FDA-Public Use
  Company Number: IT-MYLANLABS-2013S1023381

PATIENT
  Age: 42 Year
  Sex: Female

DRUGS (6)
  1. TENOFOVIR DISOPROXIL FUMARATE [Suspect]
     Indication: HIV INFECTION
     Route: 065
     Dates: start: 200801
  2. EMTRICITABINE [Suspect]
     Indication: HIV INFECTION
     Route: 065
     Dates: start: 200801, end: 200808
  3. ATAZANAVIR [Suspect]
     Route: 065
     Dates: start: 200801, end: 200808
  4. LAMIVUDINE [Suspect]
     Indication: HIV INFECTION
     Route: 065
     Dates: start: 200808
  5. ABACAVIR [Suspect]
     Indication: HIV INFECTION
     Route: 065
     Dates: start: 200808
  6. VALGANCICLOVIR [Suspect]
     Indication: SUSAC^S SYNDROME
     Route: 048

REACTIONS (3)
  - Susac^s syndrome [Recovering/Resolving]
  - Immune reconstitution inflammatory syndrome [Recovering/Resolving]
  - Haematotoxicity [Unknown]
